FAERS Safety Report 23712735 (Version 1)
Quarter: 2024Q2

REPORT INFORMATION
  Report Type: Spontaneous
  Country: CN (occurrence: None)
  Receive Date: 20240405
  Receipt Date: 20240405
  Transmission Date: 20240716
  Serious: Yes (Other)
  Sender: FDA-Public Use
  Company Number: 2024A077867

PATIENT
  Age: 65 Year
  Sex: Male
  Weight: 70 kg

DRUGS (10)
  1. TICAGRELOR [Suspect]
     Active Substance: TICAGRELOR
     Indication: Chronic coronary syndrome
     Route: 048
     Dates: start: 20240229, end: 20240317
  2. HEPARIN SODIUM [Suspect]
     Active Substance: HEPARIN SODIUM
     Indication: Chronic coronary syndrome
     Dosage: 5000.0IU DAILY
     Route: 058
     Dates: start: 20240229, end: 20240311
  3. LINEZOLID [Suspect]
     Active Substance: LINEZOLID
     Indication: Pneumonia
     Dates: start: 20240315, end: 20240320
  4. LINEZOLID [Suspect]
     Active Substance: LINEZOLID
     Indication: Pneumonia
     Dates: start: 20240320, end: 20240326
  5. MEROPENEM [Suspect]
     Active Substance: MEROPENEM
     Indication: Pneumonia
     Dates: start: 20240310, end: 20240328
  6. DALTEPARIN SODIUM [Suspect]
     Active Substance: DALTEPARIN SODIUM
     Indication: Chronic coronary syndrome
     Dosage: 5000.0IU MG, ONCE EVERY ONE DAY
     Route: 058
     Dates: start: 20240311, end: 20240325
  7. ASPIRIN [Suspect]
     Active Substance: ASPIRIN
     Indication: Chronic coronary syndrome
     Route: 048
     Dates: start: 20240229, end: 20240325
  8. SODIUM CHLORIDE [Concomitant]
     Active Substance: SODIUM CHLORIDE
     Indication: Medication dilution
     Dates: start: 20240310, end: 20240328
  9. PAPAVERINE HYDROCHLORIDE [Concomitant]
     Active Substance: PAPAVERINE HYDROCHLORIDE
     Indication: Vascular occlusion
     Dates: start: 20240318, end: 20240320
  10. DEXTROSE [Concomitant]
     Active Substance: DEXTROSE\DEXTROSE MONOHYDRATE
     Indication: Medication dilution
     Dates: start: 20240318, end: 20240320

REACTIONS (2)
  - Platelet count decreased [Recovering/Resolving]
  - Pneumonia [Unknown]

NARRATIVE: CASE EVENT DATE: 20240310
